FAERS Safety Report 9129024 (Version 1)
Quarter: 2013Q1

REPORT INFORMATION
  Report Type: Spontaneous
  Country: US (occurrence: US)
  Receive Date: 20130125
  Receipt Date: 20130125
  Transmission Date: 20140127
  Serious: No
  Sender: FDA-Public Use
  Company Number: US-BRACCO-008787

PATIENT
  Age: 68 Year
  Sex: Female
  Weight: 137 kg

DRUGS (4)
  1. DRUGS USED IN DIABETES [Concomitant]
  2. ANTIHYPERTENSIVES [Concomitant]
  3. MULTIHANCE [Suspect]
     Indication: NUCLEAR MAGNETIC RESONANCE IMAGING BRAIN
     Route: 042
     Dates: start: 20121026, end: 20121026
  4. MULTIHANCE [Suspect]
     Indication: CONFUSIONAL STATE
     Route: 042
     Dates: start: 20121026, end: 20121026

REACTIONS (3)
  - Swollen tongue [Recovered/Resolved]
  - Dyspnoea [Recovered/Resolved]
  - Erythema [Recovered/Resolved]
